FAERS Safety Report 6505769-8 (Version None)
Quarter: 2009Q4

REPORT INFORMATION
  Report Type: 
  Country: None (occurrence: None)
  Receive Date: 20091218
  Receipt Date: 20091210
  Transmission Date: 20100525
  Serious: Yes (Other)
  Sender: FDA-Public Use
  Company Number: PT-PFIZER INC-2009288779

PATIENT
  Age: 39 Year
  Sex: Female
  Weight: 80 kg

DRUGS (1)
  1. SOLU-MEDROL [Suspect]
     Dosage: 1000 MG, UNK
     Route: 042
     Dates: start: 20090923, end: 20090927

REACTIONS (2)
  - MYASTHENIC SYNDROME [None]
  - MYOSITIS [None]
